FAERS Safety Report 4462364-2 (Version None)
Quarter: 2004Q3

REPORT INFORMATION
  Report Type: 
  Country: None (occurrence: None)
  Receive Date: 20040923
  Receipt Date: 20040911
  Transmission Date: 20050211
  Serious: Yes (Death)
  Sender: FDA-Public Use
  Company Number: 04P-127-0273291-00

PATIENT
  Age: 57 Year
  Sex: Male

DRUGS (1)
  1. ULTANE [Suspect]
     Indication: ANAESTHESIA
     Dosage: ONCE, INHALATION
     Route: 055
     Dates: start: 20040628, end: 20040628

REACTIONS (4)
  - ANAESTHETIC COMPLICATION [None]
  - CARDIAC ARREST [None]
  - MEDICATION ERROR [None]
  - PHARMACEUTICAL PRODUCT COMPLAINT [None]
